FAERS Safety Report 7044840-1 (Version None)
Quarter: 2010Q4

REPORT INFORMATION
  Report Type: 
  Country: None (occurrence: None)
  Receive Date: 20101013
  Receipt Date: 20101013
  Transmission Date: 20110411
  Serious: Yes (Other)
  Sender: FDA-Public Use
  Company Number: None

PATIENT
  Age: 46 Year
  Sex: Female

DRUGS (1)
  1. BUPROPION HCL [Suspect]
     Dosage: 300 MG QAM PO
     Route: 048
     Dates: start: 20090801

REACTIONS (2)
  - DRUG EFFECT DECREASED [None]
  - PRODUCT SUBSTITUTION ISSUE [None]
